FAERS Safety Report 4818308-4 (Version None)
Quarter: 2005Q4

REPORT INFORMATION
  Report Type: 
  Country: None (occurrence: None)
  Receive Date: 20051031
  Receipt Date: 20051031
  Transmission Date: 20060501
  Serious: Yes (Hospitalization, Other)
  Sender: FDA-Public Use
  Company Number: None

PATIENT
  Age: 50 Year
  Sex: Male
  Weight: 93.8946 kg

DRUGS (1)
  1. QUETIAPINE [Suspect]
     Dosage: 100 MG PO QHS
     Route: 048
     Dates: start: 20050914, end: 20050922

REACTIONS (2)
  - ELECTROCARDIOGRAM QT CORRECTED INTERVAL PROLONGED [None]
  - MYOCARDIAL INFARCTION [None]
